FAERS Safety Report 6370029-5 (Version None)
Quarter: 2009Q3

REPORT INFORMATION
  Report Type: 
  Country: None (occurrence: None)
  Receive Date: 20090923
  Receipt Date: 20070831
  Transmission Date: 20100115
  Serious: No
  Sender: FDA-Public Use
  Company Number: US-ASTRAZENECA-2006UW03310

PATIENT
  Age: 34 Year
  Sex: Female
  Weight: 106.1 kg

DRUGS (9)
  1. SEROQUEL [Suspect]
     Indication: ANXIETY
     Route: 048
     Dates: start: 20030101
  2. SEROQUEL [Suspect]
     Indication: DEPRESSION
     Route: 048
     Dates: start: 20030101
  3. SEROQUEL [Suspect]
     Route: 048
     Dates: start: 20040625
  4. SEROQUEL [Suspect]
     Route: 048
     Dates: start: 20040625
  5. LEXAPRO [Concomitant]
     Dosage: 10 MG AND 20 MG TWO TIMES A DAY
     Route: 048
  6. LEXAPRO [Concomitant]
     Dosage: 10 - 30 MG
     Route: 048
     Dates: start: 20021106
  7. XANAX [Concomitant]
     Dosage: 0.25 - 0.5 MG
     Route: 048
     Dates: start: 20030403
  8. XANAX [Concomitant]
     Route: 048
  9. FEN-PHEN [Concomitant]

REACTIONS (3)
  - DIABETES MELLITUS [None]
  - DIABETIC COMPLICATION [None]
  - OBESITY [None]
